FAERS Safety Report 17148475 (Version 2)
Quarter: 2019Q4

REPORT INFORMATION
  Report Type: Report from Study
  Country: US (occurrence: US)
  Receive Date: 20191212
  Receipt Date: 20191219
  Transmission Date: 20200122
  Serious: Yes (Hospitalization, Other)
  Sender: FDA-Public Use
  Company Number: US-BEH-2019110625

PATIENT
  Age: 65 Year
  Sex: Male
  Weight: 79.37 kg

DRUGS (1)
  1. HAEGARDA [Suspect]
     Active Substance: HUMAN C1-ESTERASE INHIBITOR
     Dosage: UNK
     Route: 065
     Dates: start: 20190509

REACTIONS (5)
  - Blood pressure decreased [Unknown]
  - Oxygen saturation decreased [Unknown]
  - Tremor [Unknown]
  - Upper limb fracture [Unknown]
  - Bone density decreased [Unknown]

NARRATIVE: CASE EVENT DATE: 20191031
